FAERS Safety Report 9292214 (Version 1)
Quarter: 2013Q2

REPORT INFORMATION
  Report Type: Spontaneous
  Country: KR (occurrence: KR)
  Receive Date: 20130516
  Receipt Date: 20130516
  Transmission Date: 20140414
  Serious: Yes (Other)
  Sender: FDA-Public Use
  Company Number: KR-BAYER-2013-058655

PATIENT
  Sex: Female

DRUGS (1)
  1. YAZ [Suspect]
     Indication: PREMENSTRUAL SYNDROME
     Dosage: UNK
     Route: 048
     Dates: start: 201211

REACTIONS (6)
  - Menstruation delayed [None]
  - Menorrhagia [None]
  - Menstrual disorder [None]
  - Endometriosis [None]
  - Pneumothorax [None]
  - Respiratory rate decreased [None]
